FAERS Safety Report 9672295 (Version 1)
Quarter: 2013Q4

REPORT INFORMATION
  Report Type: Spontaneous
  Country: ZA (occurrence: ZA)
  Receive Date: 20131106
  Receipt Date: 20131106
  Transmission Date: 20140711
  Serious: Yes (Other)
  Sender: FDA-Public Use
  Company Number: ZA-PFIZER INC-2013312361

PATIENT
  Age: 56 Year
  Sex: Male

DRUGS (1)
  1. GEODON [Suspect]
     Dosage: 40 MG, ONCE OFF
     Route: 030
     Dates: start: 20131026, end: 20131026

REACTIONS (1)
  - Deafness bilateral [Unknown]
